FAERS Safety Report 9264321 (Version 1)
Quarter: 2013Q2

REPORT INFORMATION
  Report Type: Spontaneous
  Country: US (occurrence: US)
  Receive Date: 20130430
  Receipt Date: 20130430
  Transmission Date: 20140414
  Serious: No
  Sender: FDA-Public Use
  Company Number: US-009507513-1304USA016110

PATIENT
  Age: 48 Year
  Sex: Female

DRUGS (2)
  1. JANUVIA [Suspect]
     Dosage: UNK
     Route: 048
     Dates: start: 201302, end: 2013
  2. VICTOZA [Concomitant]
     Dosage: 1.8 MG, QD
     Dates: start: 201302

REACTIONS (4)
  - Feeling abnormal [Unknown]
  - Weight decreased [Unknown]
  - Drug ineffective [Unknown]
  - Drug ineffective [Unknown]
